FAERS Safety Report 16498216 (Version 1)
Quarter: 2019Q2

REPORT INFORMATION
  Report Type: Spontaneous
  Country: US (occurrence: US)
  Receive Date: 20190628
  Receipt Date: 20190628
  Transmission Date: 20190711
  Serious: No
  Sender: FDA-Public Use
  Company Number: US-SHIRE-US201920913

PATIENT
  Age: 53 Year
  Sex: Female

DRUGS (3)
  1. VENLAFAXINE HCL [Concomitant]
     Active Substance: VENLAFAXINE HYDROCHLORIDE
     Indication: MENOPAUSE
  2. VENLAFAXINE HCL [Concomitant]
     Active Substance: VENLAFAXINE HYDROCHLORIDE
     Indication: HOT FLUSH
  3. ADDERALL XR [Suspect]
     Active Substance: AMPHETAMINE ASPARTATE\AMPHETAMINE SULFATE\DEXTROAMPHETAMINE SACCHARATE\DEXTROAMPHETAMINE SULFATE
     Indication: ATTENTION DEFICIT/HYPERACTIVITY DISORDER
     Dosage: 25 MILLIGRAM, 1X/DAY:QD, ONCE A DAY IN THE MORNING
     Route: 048
     Dates: start: 20190621, end: 20190624

REACTIONS (1)
  - Dizziness [Recovering/Resolving]

NARRATIVE: CASE EVENT DATE: 20190621
